FAERS Safety Report 11156272 (Version 2)
Quarter: 2015Q4

REPORT INFORMATION
  Report Type: Spontaneous
  Country: JP (occurrence: JP)
  Receive Date: 20150602
  Receipt Date: 20151125
  Transmission Date: 20160304
  Serious: Yes (Death)
  Sender: FDA-Public Use
  Company Number: JP-TEVA-567140USA

PATIENT
  Age: 77 Year
  Sex: Female

DRUGS (10)
  1. FLUDARABINE PHOSPHATE. [Suspect]
     Active Substance: FLUDARABINE PHOSPHATE
     Dosage: UNK UNK, CYCLIC (MONOTHERAPY)
     Route: 042
     Dates: start: 201101
  2. BENDAMUSTINE HYDROCHLORIDE [Suspect]
     Active Substance: BENDAMUSTINE HYDROCHLORIDE
     Indication: CHRONIC LYMPHOCYTIC LEUKAEMIA
     Route: 042
     Dates: start: 20131015, end: 20131016
  3. FLUDARABINE PHOSPHATE. [Suspect]
     Active Substance: FLUDARABINE PHOSPHATE
     Dosage: UNK UNK, CYCLIC (MONOTHERAPY)
     Route: 042
     Dates: start: 200705
  4. FLUDARABINE PHOSPHATE. [Suspect]
     Active Substance: FLUDARABINE PHOSPHATE
     Dosage: UNK UNK, CYCLIC
     Route: 042
     Dates: start: 200808
  5. CYCLOPHOSPHAMIDE. [Suspect]
     Active Substance: CYCLOPHOSPHAMIDE
     Indication: CHRONIC LYMPHOCYTIC LEUKAEMIA
     Dosage: UNK UNK, CYCLIC
     Route: 042
     Dates: start: 200808
  6. FLUDARABINE PHOSPHATE. [Suspect]
     Active Substance: FLUDARABINE PHOSPHATE
     Dosage: UNK UNK, CYCLIC (MONOTHERAPY)
     Route: 042
     Dates: start: 200604
  7. FLUDARABINE PHOSPHATE. [Suspect]
     Active Substance: FLUDARABINE PHOSPHATE
     Dosage: UNK UNK, CYCLIC (MONOTHERAPY)
     Route: 048
     Dates: start: 201309
  8. CYCLOPHOSPHAMIDE. [Suspect]
     Active Substance: CYCLOPHOSPHAMIDE
     Dosage: UNK UNK, CYCLIC (2 CYCLES OF MONOTHERAPY)
     Route: 048
     Dates: start: 201210
  9. FLUDARABINE PHOSPHATE. [Suspect]
     Active Substance: FLUDARABINE PHOSPHATE
     Indication: CHRONIC LYMPHOCYTIC LEUKAEMIA
     Dosage: UNK UNK, CYCLIC (MONOTHERAPY)
     Route: 042
     Dates: start: 200408
  10. FLUDARABINE PHOSPHATE. [Suspect]
     Active Substance: FLUDARABINE PHOSPHATE
     Dosage: UNK UNK, CYCLIC (MONOTHERAPY)
     Route: 042
     Dates: start: 201203

REACTIONS (3)
  - White blood cell count decreased [Recovered/Resolved]
  - Progressive multifocal leukoencephalopathy [Fatal]
  - Off label use [Unknown]

NARRATIVE: CASE EVENT DATE: 20131111
